FAERS Safety Report 5358004-0 (Version None)
Quarter: 2007Q2

REPORT INFORMATION
  Report Type: 
  Country: None (occurrence: None)
  Receive Date: 20070530
  Receipt Date: 20061204
  Transmission Date: 20071010
  Serious: Yes (Hospitalization)
  Sender: FDA-Public Use
  Company Number: US200612001143

PATIENT
  Age: 58 Year
  Sex: Female

DRUGS (1)
  1. ZYPREXA [Suspect]
     Dosage: 20 MG, ORAL
     Route: 048
     Dates: start: 19991201, end: 20061023

REACTIONS (1)
  - BLOOD GLUCOSE INCREASED [None]
